FAERS Safety Report 20103210 (Version 1)
Quarter: 2021Q4

REPORT INFORMATION
  Report Type: Spontaneous
  Country: US (occurrence: None)
  Receive Date: 20211123
  Receipt Date: 20211123
  Transmission Date: 20220303
  Serious: Yes (Other)
  Sender: FDA-Public Use
  Company Number: 2021A825073

PATIENT
  Age: 50 Year
  Sex: Male
  Weight: 90.7 kg

DRUGS (44)
  1. PRILOSEC OTC [Suspect]
     Active Substance: OMEPRAZOLE MAGNESIUM
     Indication: Gastrooesophageal reflux disease
     Dosage: RECOMENDED DOSE
     Route: 048
     Dates: start: 2016, end: 2017
  2. PRILOSEC OTC [Suspect]
     Active Substance: OMEPRAZOLE MAGNESIUM
     Indication: Gastrooesophageal reflux disease
     Dosage: RECOMENDED DOSE
     Route: 048
     Dates: start: 2016, end: 2017
  3. PREVACID [Suspect]
     Active Substance: LANSOPRAZOLE
     Indication: Gastrooesophageal reflux disease
     Route: 065
     Dates: end: 2017
  4. PREVACID [Suspect]
     Active Substance: LANSOPRAZOLE
     Indication: Gastrooesophageal reflux disease
     Route: 065
     Dates: end: 2017
  5. PREVACID 24 HR [Suspect]
     Active Substance: LANSOPRAZOLE
     Indication: Gastrooesophageal reflux disease
     Dosage: RECOMENDED DOSE
     Route: 065
     Dates: start: 2016, end: 2017
  6. PREVACID 24 HR [Suspect]
     Active Substance: LANSOPRAZOLE
     Indication: Gastrooesophageal reflux disease
     Dosage: RECOMENDED DOSE
     Route: 065
     Dates: start: 2016, end: 2017
  7. PROTONIX [Suspect]
     Active Substance: PANTOPRAZOLE SODIUM
     Indication: Gastrooesophageal reflux disease
     Dosage: 40.0MG UNKNOWN
     Route: 065
     Dates: start: 2016, end: 2017
  8. PROTONIX [Suspect]
     Active Substance: PANTOPRAZOLE SODIUM
     Indication: Gastrooesophageal reflux disease
     Dosage: 40.0MG UNKNOWN
     Route: 065
     Dates: start: 2016, end: 2017
  9. ZESTRIL [Concomitant]
     Active Substance: LISINOPRIL
     Indication: Hypertension
     Dates: start: 2017, end: 2020
  10. LYRICA [Concomitant]
     Active Substance: PREGABALIN
     Indication: Neuralgia
     Dates: start: 2017, end: 2020
  11. ATORVASTATIN [Concomitant]
     Active Substance: ATORVASTATIN
     Indication: Blood cholesterol increased
     Dates: start: 2017, end: 2020
  12. GLIMEPIRIDE [Concomitant]
     Active Substance: GLIMEPIRIDE
     Indication: Diabetes mellitus
     Dates: start: 2017, end: 2020
  13. ASPIRIN [Concomitant]
     Active Substance: ASPIRIN
     Indication: Blood cholesterol increased
     Dates: start: 2017, end: 2020
  14. AMARYL [Concomitant]
     Active Substance: GLIMEPIRIDE
  15. ELIQUIS [Concomitant]
     Active Substance: APIXABAN
  16. HUMALOG [Concomitant]
     Active Substance: INSULIN LISPRO
  17. LANTUS [Concomitant]
     Active Substance: INSULIN GLARGINE
  18. METOPROLOL TARTRATE [Concomitant]
     Active Substance: METOPROLOL TARTRATE
  19. LEVOTHYROXINE [Concomitant]
     Active Substance: LEVOTHYROXINE
  20. ULTRAM [Concomitant]
     Active Substance: TRAMADOL HYDROCHLORIDE
  21. PRAZOSIN [Concomitant]
     Active Substance: PRAZOSIN
  22. XANAX [Concomitant]
     Active Substance: ALPRAZOLAM
  23. ALBUTEROL [Concomitant]
     Active Substance: ALBUTEROL
  24. ALPRAZOLAM [Concomitant]
     Active Substance: ALPRAZOLAM
  25. FLONASE [Concomitant]
     Active Substance: FLUTICASONE PROPIONATE
  26. CLOTRIMAZOLE [Concomitant]
     Active Substance: CLOTRIMAZOLE
  27. DOXYCYCLINE [Concomitant]
     Active Substance: DOXYCYCLINE
  28. GABAPENTIN [Concomitant]
     Active Substance: GABAPENTIN
  29. LIPITOR [Concomitant]
     Active Substance: ATORVASTATIN CALCIUM
  30. OXYBUTYNIN [Concomitant]
     Active Substance: OXYBUTYNIN
  31. TRAMADOL [Concomitant]
     Active Substance: TRAMADOL
  32. ZOFRAN [Concomitant]
     Active Substance: ONDANSETRON HYDROCHLORIDE
  33. VISTARIL [Concomitant]
     Active Substance: HYDROXYZINE PAMOATE
  34. APIXABAN [Concomitant]
     Active Substance: APIXABAN
  35. INSULIN NOS [Concomitant]
     Active Substance: INSULIN NOS
  36. ZETIA [Concomitant]
     Active Substance: EZETIMIBE
  37. HYDROXYINE [Concomitant]
  38. METOPROLOL [Concomitant]
     Active Substance: METOPROLOL
  39. LEVEMIR [Concomitant]
     Active Substance: INSULIN DETEMIR
  40. VITAMIN D2 [Concomitant]
     Active Substance: ERGOCALCIFEROL
  41. PROAIR HFA [Concomitant]
     Active Substance: ALBUTEROL SULFATE
  42. AMLODIPINE [Concomitant]
     Active Substance: AMLODIPINE BESYLATE
  43. BUSPIRONE [Concomitant]
     Active Substance: BUSPIRONE HYDROCHLORIDE
  44. FOLIC ACID [Concomitant]
     Active Substance: FOLIC ACID

REACTIONS (5)
  - Chronic kidney disease [Not Recovered/Not Resolved]
  - Acute kidney injury [Not Recovered/Not Resolved]
  - Nephrogenic anaemia [Unknown]
  - Renal failure [Unknown]
  - Renal tubular necrosis [Unknown]

NARRATIVE: CASE EVENT DATE: 20170101
